FAERS Safety Report 5251517-1 (Version None)
Quarter: 2007Q1

REPORT INFORMATION
  Report Type: 
  Country: None (occurrence: None)
  Receive Date: 20070228
  Receipt Date: 20060522
  Transmission Date: 20070707
  Serious: No
  Sender: FDA-Public Use
  Company Number: US-GLAXOSMITHKLINE-A0606522A

PATIENT
  Age: 59 Year
  Sex: Male

DRUGS (1)
  1. LAMICTAL [Suspect]
     Route: 048
     Dates: end: 20060401

REACTIONS (1)
  - RASH [None]
